FAERS Safety Report 9777603 (Version 1)
Quarter: 2013Q4

REPORT INFORMATION
  Report Type: Other
  Country: IT (occurrence: IT)
  Receive Date: 20131222
  Receipt Date: 20131222
  Transmission Date: 20140711
  Serious: Yes (Other)
  Sender: FDA-Public Use
  Company Number: IT-BRISTOL-MYERS SQUIBB COMPANY-19923481

PATIENT
  Age: 89 Year
  Sex: Female

DRUGS (2)
  1. METFORMIN HCL [Suspect]
  2. SERTRALINE [Suspect]
     Indication: POST-TRAUMATIC STRESS DISORDER
     Dosage: DOSE INCREASED TO 50 MG.?FOR 1 WEEKS.

REACTIONS (1)
  - Inappropriate antidiuretic hormone secretion [Unknown]
